FAERS Safety Report 15732655 (Version 1)
Quarter: 2018Q4

REPORT INFORMATION
  Report Type: Spontaneous
  Country: US (occurrence: US)
  Receive Date: 20181217
  Receipt Date: 20181217
  Transmission Date: 20190205
  Serious: Yes (Other)
  Sender: FDA-Public Use
  Company Number: US-BAYER-2018-233218

PATIENT
  Sex: Female

DRUGS (1)
  1. ALKA-SELTZER PLUS SEVERE COLD, MUCUS AND CONGESTION [Suspect]
     Active Substance: ACETAMINOPHEN\DEXTROMETHORPHAN HYDROBROMIDE\GUAIFENESIN\PHENYLEPHRINE HYDROCHLORIDE
     Dosage: 1 DF, ONCE
     Route: 048
     Dates: start: 2018, end: 2018

REACTIONS (1)
  - Choking [Unknown]

NARRATIVE: CASE EVENT DATE: 2018
